FAERS Safety Report 16786717 (Version 1)
Quarter: 2019Q3

REPORT INFORMATION
  Report Type: Spontaneous
  Country: FR (occurrence: FR)
  Receive Date: 20190909
  Receipt Date: 20190909
  Transmission Date: 20191005
  Serious: Yes (Hospitalization, Other)
  Sender: FDA-Public Use
  Company Number: FR-SA-2019SA248858

PATIENT
  Age: 44 Year
  Sex: Female
  Weight: 46 kg

DRUGS (2)
  1. EVOLTRA [Suspect]
     Active Substance: CLOFARABINE
     Indication: MYELODYSPLASTIC SYNDROME TRANSFORMATION
     Dosage: 200 MG/M2, QCY
     Route: 041
     Dates: start: 20190729, end: 20190802
  2. CYTARABINE. [Suspect]
     Active Substance: CYTARABINE
     Indication: MYELODYSPLASTIC SYNDROME TRANSFORMATION
     Dosage: 5000 MG/M2, QCY
     Route: 041
     Dates: start: 20190729, end: 20190802

REACTIONS (1)
  - Pericarditis [Recovering/Resolving]

NARRATIVE: CASE EVENT DATE: 20190814
